FAERS Safety Report 8203507-4 (Version None)
Quarter: 2012Q1

REPORT INFORMATION
  Report Type: 
  Country: None (occurrence: None)
  Receive Date: 20120313
  Receipt Date: 20120306
  Transmission Date: 20120608
  Serious: No
  Sender: FDA-Public Use
  Company Number: US-BIOGENIDEC-2010BI014942

PATIENT
  Age: 40 Year
  Sex: Female

DRUGS (5)
  1. TYSABRI [Suspect]
     Indication: MULTIPLE SCLEROSIS
     Route: 042
     Dates: start: 20100401, end: 20100401
  2. TYSABRI [Suspect]
     Route: 042
     Dates: start: 20100501, end: 20100528
  3. TYSABRI [Suspect]
     Route: 042
     Dates: start: 20120214
  4. AVONEX [Concomitant]
     Indication: MULTIPLE SCLEROSIS
     Route: 030
  5. AVONEX [Concomitant]
     Route: 030

REACTIONS (6)
  - FALL [None]
  - RASH [None]
  - PAIN IN EXTREMITY [None]
  - URTICARIA [None]
  - HEART RATE INCREASED [None]
  - PRURITUS GENERALISED [None]
